FAERS Safety Report 4924195-6 (Version None)
Quarter: 2006Q1

REPORT INFORMATION
  Report Type: 
  Country: None (occurrence: None)
  Receive Date: 20060227
  Receipt Date: 20051212
  Transmission Date: 20060701
  Serious: No
  Sender: FDA-Public Use
  Company Number: US-GLAXOSMITHKLINE-A0585493A

PATIENT
  Age: 16 Year
  Sex: Male

DRUGS (3)
  1. WELLBUTRIN XL [Suspect]
     Indication: DEPRESSION
     Dosage: 150MG PER DAY
     Route: 048
     Dates: start: 20051114
  2. MULTI-VITAMIN [Concomitant]
  3. VIT. C [Concomitant]

REACTIONS (2)
  - DRUG SCREEN POSITIVE [None]
  - SOMNOLENCE [None]
